FAERS Safety Report 20880398 (Version 3)
Quarter: 2022Q3

REPORT INFORMATION
  Report Type: Spontaneous
  Country: CO (occurrence: CO)
  Receive Date: 20220526
  Receipt Date: 20220711
  Transmission Date: 20221026
  Serious: Yes (Other)
  Sender: FDA-Public Use
  Company Number: CO-PFIZER INC-202200390016

PATIENT
  Age: 44 Year
  Sex: Female

DRUGS (9)
  1. XELJANZ XR [Suspect]
     Active Substance: TOFACITINIB CITRATE
     Indication: Rheumatoid arthritis
     Dosage: 11 MG
     Route: 048
     Dates: start: 2020, end: 202109
  2. XELJANZ XR [Suspect]
     Active Substance: TOFACITINIB CITRATE
     Dosage: 11 MG
     Route: 048
     Dates: start: 2021, end: 202110
  3. XELJANZ XR [Suspect]
     Active Substance: TOFACITINIB CITRATE
     Dosage: 11 MG, DAILY
     Route: 048
     Dates: start: 2021
  4. XELJANZ XR [Suspect]
     Active Substance: TOFACITINIB CITRATE
     Dosage: 11 MG, DAILY
     Route: 048
     Dates: start: 2021
  5. XELJANZ XR [Suspect]
     Active Substance: TOFACITINIB CITRATE
     Dosage: 11 MG, DAILY
     Route: 048
     Dates: start: 2020
  6. XELJANZ XR [Suspect]
     Active Substance: TOFACITINIB CITRATE
     Dosage: 11 MG, DAILY
     Route: 048
     Dates: start: 2020, end: 202109
  7. FLUIMUCIL [Concomitant]
     Active Substance: ACETYLCYSTEINE
     Dosage: UNK
  8. PREDNISOLONE [Concomitant]
     Active Substance: PREDNISOLONE
     Dosage: UNK
  9. ACETAMINOPHEN [Concomitant]
     Active Substance: ACETAMINOPHEN
     Dosage: UNK

REACTIONS (34)
  - Visual impairment [Unknown]
  - Vision blurred [Unknown]
  - Metamorphopsia [Unknown]
  - Product dispensing issue [Unknown]
  - Product prescribing error [Unknown]
  - Product dose omission issue [Unknown]
  - Pain [Not Recovered/Not Resolved]
  - Condition aggravated [Unknown]
  - Arthralgia [Not Recovered/Not Resolved]
  - Pain in extremity [Not Recovered/Not Resolved]
  - Eye swelling [Unknown]
  - Asthenia [Unknown]
  - Hypokinesia [Unknown]
  - Joint injury [Unknown]
  - Limb injury [Unknown]
  - Swelling [Unknown]
  - Influenza [Unknown]
  - Cough [Unknown]
  - Fatigue [Unknown]
  - Joint swelling [Unknown]
  - Self-medication [Unknown]
  - Dizziness [Unknown]
  - Headache [Unknown]
  - Mental fatigue [Unknown]
  - Pyrexia [Unknown]
  - Insomnia [Unknown]
  - Musculoskeletal chest pain [Unknown]
  - Malaise [Unknown]
  - Arthralgia [Unknown]
  - Chapped lips [Unknown]
  - Lip dry [Unknown]
  - Erythropsia [Unknown]
  - Eye pain [Unknown]
  - Arthritis [Unknown]

NARRATIVE: CASE EVENT DATE: 20210901
